FAERS Safety Report 7374158-9 (Version None)
Quarter: 2011Q1

REPORT INFORMATION
  Report Type: 
  Country: None (occurrence: None)
  Receive Date: 20110225
  Receipt Date: 20101202
  Transmission Date: 20110831
  Serious: No
  Sender: FDA-Public Use
  Company Number: 319540

PATIENT
  Age: 56 Year
  Sex: Female

DRUGS (3)
  1. VICTOZA [Suspect]
     Indication: TYPE 2 DIABETES MELLITUS
     Dosage: 1.2 MG, QD, SUBCUTANEOUS
     Route: 058
     Dates: start: 20101118
  2. GLUCOVAN (GLIBENCLAMIDE, METFORMIN HYDROCHLORIDE) [Concomitant]
  3. METFORMIN HCL [Concomitant]

REACTIONS (1)
  - DRUG INEFFECTIVE [None]
